FAERS Safety Report 20724632 (Version 10)
Quarter: 2023Q2

REPORT INFORMATION
  Report Type: Report from Study
  Country: US (occurrence: US)
  Receive Date: 20220419
  Receipt Date: 20230401
  Transmission Date: 20230721
  Serious: Yes (Hospitalization)
  Sender: FDA-Public Use
  Company Number: US-NOVARTISTESTPH-NVSC2022US090701

PATIENT
  Age: 76 Year
  Sex: Female

DRUGS (2)
  1. COSENTYX [Suspect]
     Active Substance: SECUKINUMAB
     Indication: Product used for unknown indication
     Dosage: 300 MG, QW
     Route: 065
     Dates: start: 20220412
  2. COSENTYX [Suspect]
     Active Substance: SECUKINUMAB
     Dosage: UNK
     Route: 065

REACTIONS (9)
  - Foot fracture [Unknown]
  - Pyrexia [Unknown]
  - Infection [Unknown]
  - Psoriasis [Unknown]
  - Pruritus [Unknown]
  - Nausea [Unknown]
  - Laryngitis [Unknown]
  - Respiratory disorder [Unknown]
  - Aphonia [Unknown]

NARRATIVE: CASE EVENT DATE: 20220412
